FAERS Safety Report 23532383 (Version 3)
Quarter: 2024Q4

REPORT INFORMATION
  Report Type: Spontaneous
  Country: US (occurrence: US)
  Receive Date: 20240216
  Receipt Date: 20241108
  Transmission Date: 20250115
  Serious: No
  Sender: VERTEX
  Company Number: US-VERTEX PHARMACEUTICALS-2024-002464

PATIENT
  Age: 26 Year
  Sex: Female

DRUGS (2)
  1. ELEXACAFTOR\IVACAFTOR\TEZACAFTOR [Suspect]
     Active Substance: ELEXACAFTOR\IVACAFTOR\TEZACAFTOR
     Indication: Cystic fibrosis
     Dosage: UNKNOWN
     Route: 048
  2. ELEXACAFTOR\IVACAFTOR\TEZACAFTOR [Suspect]
     Active Substance: ELEXACAFTOR\IVACAFTOR\TEZACAFTOR
     Dosage: UNKNOWN
     Route: 048
     Dates: start: 202309

REACTIONS (9)
  - Feeling abnormal [Unknown]
  - Bronchopulmonary aspergillosis allergic [Unknown]
  - Cystic fibrosis related diabetes [Unknown]
  - Pneumonia fungal [Unknown]
  - Alopecia [Unknown]
  - Hair growth abnormal [Unknown]
  - Menstruation irregular [Unknown]
  - Polycystic ovarian syndrome [Unknown]
  - Blood glucose abnormal [Recovered/Resolved]

NARRATIVE: CASE EVENT DATE: 20231201
